FAERS Safety Report 6443546-7 (Version None)
Quarter: 2009Q4

REPORT INFORMATION
  Report Type: 
  Country: None (occurrence: None)
  Receive Date: 20091117
  Receipt Date: 20091116
  Transmission Date: 20100525
  Serious: Yes (Hospitalization, Other)
  Sender: FDA-Public Use
  Company Number: US-ROXANE LABORATORIES, INC.-2009-RO-00533RO

PATIENT
  Sex: Female
  Weight: 77 kg

DRUGS (14)
  1. ZOLPIDEM [Suspect]
     Indication: SLEEP DISORDER
     Route: 048
     Dates: start: 20090101
  2. DEXAMETHASONE [Suspect]
     Indication: MULTIPLE MYELOMA
     Dosage: 40 MG
     Route: 048
     Dates: start: 20081201
  3. VELCADE [Suspect]
     Indication: MULTIPLE MYELOMA
     Route: 042
     Dates: start: 20081205, end: 20090126
  4. THALIDOMIDE [Suspect]
     Indication: MULTIPLE MYELOMA
     Dosage: 100 MG
     Route: 048
     Dates: start: 20090119, end: 20090119
  5. THALIDOMIDE [Suspect]
     Dosage: 200 MG
     Route: 048
     Dates: start: 20090120
  6. DIFLUCAN [Suspect]
  7. ZYLOPRIM [Suspect]
  8. CATAPRES [Concomitant]
  9. SYNTHROID [Concomitant]
  10. LOPRESSOR [Concomitant]
  11. NEPHRO-VITE RX [Concomitant]
  12. PRILOSEC [Concomitant]
  13. NORVASC [Concomitant]
  14. TUMS [Concomitant]

REACTIONS (6)
  - BLOOD IMMUNOGLOBULIN A DECREASED [None]
  - BLOOD IMMUNOGLOBULIN G DECREASED [None]
  - BLOOD IMMUNOGLOBULIN M DECREASED [None]
  - STAPHYLOCOCCAL INFECTION [None]
  - TOXIC EPIDERMAL NECROLYSIS [None]
  - WOUND [None]
